FAERS Safety Report 9858847 (Version 2)
Quarter: 2014Q1

REPORT INFORMATION
  Report Type: Report from Study
  Country: JP (occurrence: JP)
  Receive Date: 20140131
  Receipt Date: 20140324
  Transmission Date: 20141002
  Serious: Yes (Other)
  Sender: FDA-Public Use
  Company Number: JP-BAXTER-2014BAX003867

PATIENT
  Age: 52 Year
  Sex: Male

DRUGS (5)
  1. FEIBA FOR INJECTION 1000 [Suspect]
     Indication: GASTROINTESTINAL HAEMORRHAGE
     Route: 065
  2. NOVOSEVEN [Suspect]
     Indication: BIOPSY SMALL INTESTINE
     Route: 065
  3. TRANSAMIN [Suspect]
     Indication: GASTROINTESTINAL HAEMORRHAGE
     Route: 065
  4. TRANSAMIN [Suspect]
     Indication: BIOPSY SMALL INTESTINE
  5. CYCLOSPORINE [Suspect]
     Indication: FACTOR VIII INHIBITION
     Route: 065

REACTIONS (1)
  - Haemolytic uraemic syndrome [Recovering/Resolving]
